FAERS Safety Report 5848800-5 (Version None)
Quarter: 2008Q3

REPORT INFORMATION
  Report Type: 
  Country: None (occurrence: None)
  Receive Date: 20080818
  Receipt Date: 20080204
  Transmission Date: 20090109
  Serious: No
  Sender: FDA-Public Use
  Company Number: US-BAYER-200813139NA

PATIENT
  Age: 46 Year
  Sex: Female
  Weight: 77 kg

DRUGS (11)
  1. BETASERON [Suspect]
     Indication: SECONDARY PROGRESSIVE MULTIPLE SCLEROSIS
     Dosage: TOTAL DAILY DOSE: 0.3 MG
     Route: 058
     Dates: start: 19830101
  2. ZANAFLEX [Concomitant]
     Dosage: TOTAL DAILY DOSE: 12 MG
     Route: 048
  3. VALIUM [Concomitant]
     Dosage: TOTAL DAILY DOSE: 30 MG
     Route: 048
  4. FURADANTIN [Concomitant]
     Dosage: AS USED: 100 MG
  5. BACTRIM [Concomitant]
  6. PRILOSEC [Concomitant]
     Dosage: TOTAL DAILY DOSE: 80  MG
  7. FOLIC ACID AND VITAMIN B [Concomitant]
  8. LORATABS [Concomitant]
     Route: 048
  9. FISH OIL [Concomitant]
  10. ST JOHNS WORT [Concomitant]
  11. BASA [Concomitant]

REACTIONS (1)
  - INJECTION SITE HAEMATOMA [None]
